FAERS Safety Report 7714712-5 (Version None)
Quarter: 2011Q3

REPORT INFORMATION
  Report Type: 
  Country: None (occurrence: None)
  Receive Date: 20110822
  Receipt Date: 20110817
  Transmission Date: 20111222
  Serious: Yes (Other)
  Sender: FDA-Public Use
  Company Number: 1000022928

PATIENT
  Age: 45 Year
  Sex: Female

DRUGS (1)
  1. LEXAPRO [Suspect]
     Dosage: 10 MG (10 MG, 1 IN 1 D), ORAL
     Route: 048

REACTIONS (2)
  - LYMPHOCYTIC INFILTRATION [None]
  - DIARRHOEA [None]
